FAERS Safety Report 9091006 (Version 2)
Quarter: 2013Q1

REPORT INFORMATION
  Report Type: Spontaneous
  Country: US (occurrence: US)
  Receive Date: 20130131
  Receipt Date: 20130201
  Transmission Date: 20140127
  Serious: No
  Sender: FDA-Public Use
  Company Number: US-009507513-1301USA014315

PATIENT
  Sex: Female

DRUGS (1)
  1. PROVENTIL [Suspect]
     Indication: WHEEZING
     Dosage: 2 PUFFS EVERY 4 HOURS, PRN
     Route: 055
     Dates: start: 201301

REACTIONS (2)
  - Drug dose omission [Unknown]
  - Product quality issue [Unknown]
